FAERS Safety Report 19665902 (Version 1)
Quarter: 2021Q3

REPORT INFORMATION
  Report Type: Spontaneous
  Country: NL (occurrence: NL)
  Receive Date: 20210806
  Receipt Date: 20210806
  Transmission Date: 20211014
  Serious: Yes (Hospitalization)
  Sender: FDA-Public Use
  Company Number: NL-TEVA-2021-NL-1939254

PATIENT
  Age: 73 Year
  Sex: Female
  Weight: 49.1 kg

DRUGS (11)
  1. SALMETEROL/FLUTICASON AEROSOL  25/50UG/DO / BRAND NAME NOT SPECIFIED [Concomitant]
     Dosage: AEROSOL, 25/50 MCG/DOSE (MICROGRAMS PER DOSE)THERAPY START DATE:THERAPY END DATE :ASKU
  2. OXYCODON CAPSULE  5MG / BRAND NAME NOT SPECIFIED [Concomitant]
     Active Substance: OXYCODONE
     Dosage: 5 MG (MILLIGRAM)THERAPY START DATE:THERAPY END DATE :ASKU
  3. CIPROFLOXACINE TABLET 500MG / BRAND NAME NOT SPECIFIED [Suspect]
     Active Substance: CIPROFLOXACIN
     Indication: KLEBSIELLA INFECTION
     Dosage: 1000 MILLIGRAM DAILY; 2X A DAY 1 PIECETHERAPY END DATE :ASKU
     Dates: start: 20210622
  4. AMYLASE/LIPASE/PROTEASE 2NF / BRAND NAME NOT SPECIFIED [Concomitant]
     Dosage: DRINK 25,000 IU/MILTHERAPY START DATE:THERAPY END DATE :ASKU
  5. SALBUTAMOL/IPRATROPIUM VERNEVELVLST 1/0,2MG/ML / COMBIVENT UNIT DOSE V [Concomitant]
     Dosage: NEBULISER FLUID, 1/0.2 MG/ML (MILLIGRAMS PER MILLILITER):VIALTHERAPY START DATE :THERAPY END DATE:AS
  6. PARACETAMOL TABLET  500MG / BPH PARACETAMOL TABLET 500MG [Concomitant]
     Dosage: 500 MG (MILLIGRAM)THERAPY START DATE :THERAPY END DATE :ASKU
  7. MACROGOL/ZOUTEN PDR V DRANK (MOVIC/MOLAX/LAXT/GEN) / BRAND NAME NOT SP [Concomitant]
     Dosage: POWDER FOR DRINKTHERAPY START DATE:THERAPY END DATE :ASKU
  8. PANTOPRAZOL TABLET MSR 40MG / BRAND NAME NOT SPECIFIED [Concomitant]
     Active Substance: PANTOPRAZOLE
     Dosage: 40 MG (MILLIGRAM)THERAPY START DATE :THERAPY END DATE :ASKU
  9. COLECALCIFEROL DRANK  25.000IE/ML / BRAND NAME NOT SPECIFIED [Concomitant]
     Dosage: BEVERAGE, 25000 IU/ML (UNITS PER MILLILITER)THERAPY START DATE:THERAPY END DATE:ASKU:DRINK
  10. METOCLOPRAMIDE TABLET 10MG / BRAND NAME NOT SPECIFIED [Concomitant]
     Active Substance: METOCLOPRAMIDE
     Dosage: 10 MG (MILLIGRAM)THERAPY START DATE :THERAPY END DATE :ASKU
  11. DABIGATRAN ETEXILAAT CAPSULE 150MG / BRAND NAME NOT SPECIFIED [Concomitant]
     Dosage: 150 MG (MILLIGRAM)THERAPY START DATE:THERAPY END DATE :ASKU

REACTIONS (2)
  - Hepatic enzyme increased [Recovering/Resolving]
  - Blood lactate dehydrogenase increased [Recovering/Resolving]

NARRATIVE: CASE EVENT DATE: 20210708
